FAERS Safety Report 9446532 (Version 1)
Quarter: 2013Q3

REPORT INFORMATION
  Report Type: Spontaneous
  Country: US (occurrence: US)
  Receive Date: 20130807
  Receipt Date: 20130807
  Transmission Date: 20140515
  Serious: No
  Sender: FDA-Public Use
  Company Number: US-AMGEN-USASP2013040304

PATIENT
  Age: 43 Year
  Sex: Female
  Weight: 58.05 kg

DRUGS (4)
  1. ENBREL [Suspect]
     Indication: RHEUMATOID ARTHRITIS
     Dosage: 50 MG, QWK
     Route: 058
     Dates: start: 20060101
  2. MULTIVITAMIN                       /00097801/ [Concomitant]
     Dosage: UNK UNK, QD
     Route: 048
  3. PREDNISONE [Concomitant]
     Dosage: 2 MG, QD
     Route: 048
  4. SYNTHYROID [Concomitant]
     Dosage: UNK UNK, QD
     Route: 048

REACTIONS (1)
  - Premature delivery [Recovered/Resolved]
